FAERS Safety Report 23417423 (Version 1)
Quarter: 2024Q1

REPORT INFORMATION
  Report Type: Spontaneous
  Country: US (occurrence: US)
  Receive Date: 20240118
  Receipt Date: 20240118
  Transmission Date: 20240410
  Serious: No
  Sender: FDA-Public Use
  Company Number: US-MYLANLABS-2023M1132848

PATIENT
  Sex: Female
  Weight: 61.23 kg

DRUGS (1)
  1. VENLAFAXINE [Suspect]
     Active Substance: VENLAFAXINE HYDROCHLORIDE
     Indication: Hot flush
     Dosage: 31.5 MILLIGRAM, QD
     Route: 065
     Dates: start: 2018

REACTIONS (1)
  - Off label use [Unknown]
